FAERS Safety Report 19146976 (Version 1)
Quarter: 2021Q2

REPORT INFORMATION
  Report Type: Spontaneous
  Country: US (occurrence: US)
  Receive Date: 20210416
  Receipt Date: 20210416
  Transmission Date: 20210717
  Serious: No
  Sender: FDA-Public Use
  Company Number: US-TAKEDA-2021TUS024151

PATIENT
  Sex: Male
  Weight: 61 kg

DRUGS (2)
  1. VITAMIN D [VITAMIN D NOS] [Concomitant]
     Active Substance: VITAMIN D NOS
     Indication: IMMUNODEFICIENCY
     Route: 065
  2. LIALDA [Suspect]
     Active Substance: MESALAMINE
     Indication: COLITIS ULCERATIVE
     Dosage: 1.2 GRAM, QD
     Route: 065

REACTIONS (7)
  - Pain [Not Recovered/Not Resolved]
  - Therapy interrupted [Unknown]
  - Haemorrhoids [Not Recovered/Not Resolved]
  - Asthenia [Unknown]
  - Anorectal discomfort [Not Recovered/Not Resolved]
  - Fatigue [Unknown]
  - Product availability issue [Unknown]
